FAERS Safety Report 17199976 (Version 6)
Quarter: 2020Q4

REPORT INFORMATION
  Report Type: Report from Study
  Country: US (occurrence: US)
  Receive Date: 20191226
  Receipt Date: 20201028
  Transmission Date: 20210113
  Serious: No
  Sender: FDA-Public Use
  Company Number: NVSC2019US079557

PATIENT
  Age: 40 Year
  Sex: Female

DRUGS (3)
  1. COSENTYX [Suspect]
     Active Substance: SECUKINUMAB
     Indication: PUSTULAR PSORIASIS
     Dosage: 300 MG, QMO
     Route: 058
     Dates: start: 20191010
  2. COSENTYX [Suspect]
     Active Substance: SECUKINUMAB
     Indication: PSORIATIC ARTHROPATHY
     Dosage: 300 MG, QMO
     Route: 058
  3. COSENTYX [Suspect]
     Active Substance: SECUKINUMAB
     Route: 058
     Dates: start: 20190930

REACTIONS (10)
  - Product use in unapproved indication [Unknown]
  - Dysphagia [Unknown]
  - Diarrhoea [Unknown]
  - Gastritis [Not Recovered/Not Resolved]
  - Functional gastrointestinal disorder [Unknown]
  - Gastrointestinal ulcer [Unknown]
  - Localised infection [Recovered/Resolved]
  - Abdominal pain upper [Unknown]
  - Hiatus hernia [Not Recovered/Not Resolved]
  - Oesophagitis [Not Recovered/Not Resolved]

NARRATIVE: CASE EVENT DATE: 20200101
